FAERS Safety Report 17409620 (Version 1)
Quarter: 2020Q1

REPORT INFORMATION
  Report Type: Spontaneous
  Country: CA (occurrence: CA)
  Receive Date: 20200212
  Receipt Date: 20200212
  Transmission Date: 20200409
  Serious: Yes (Other)
  Sender: FDA-Public Use
  Company Number: CA-TEVA-2020-CA-1183177

PATIENT
  Age: 28 Year
  Sex: Male

DRUGS (20)
  1. LUTETIUM (LU 177)/SMT 487 [Suspect]
     Active Substance: EDOTREOTIDE\LUTETIUM LU-177
     Indication: METASTASES TO BONE
  2. DACARBAZINE. [Suspect]
     Active Substance: DACARBAZINE
     Indication: METASTASES TO LIVER
  3. LUTETIUM (LU 177)/SMT 487 [Suspect]
     Active Substance: EDOTREOTIDE\LUTETIUM LU-177
     Indication: PARAGANGLION NEOPLASM
     Route: 065
  4. PROCYTOX 2000MG/VIAL [Suspect]
     Active Substance: CYCLOPHOSPHAMIDE
     Indication: PARAGANGLION NEOPLASM
     Route: 065
  5. VINCRISTINE [Suspect]
     Active Substance: VINCRISTINE
     Indication: PARAGANGLION NEOPLASM
     Route: 065
  6. DACARBAZINE. [Suspect]
     Active Substance: DACARBAZINE
     Indication: METASTASES TO LUNG
  7. LUTETIUM (LU 177)/SMT 487 [Suspect]
     Active Substance: EDOTREOTIDE\LUTETIUM LU-177
     Indication: METASTASES TO LIVER
  8. SUNITINIB [Suspect]
     Active Substance: SUNITINIB
     Indication: METASTASES TO LUNG
  9. VINCRISTINE [Suspect]
     Active Substance: VINCRISTINE
     Indication: METASTASES TO LUNG
  10. DACARBAZINE. [Suspect]
     Active Substance: DACARBAZINE
     Indication: PARAGANGLION NEOPLASM
     Route: 065
  11. PROCYTOX 2000MG/VIAL [Suspect]
     Active Substance: CYCLOPHOSPHAMIDE
     Indication: METASTASES TO LUNG
  12. SUNITINIB [Suspect]
     Active Substance: SUNITINIB
     Indication: METASTASES TO LIVER
  13. SUNITINIB [Suspect]
     Active Substance: SUNITINIB
     Indication: METASTASES TO BONE
  14. DACARBAZINE. [Suspect]
     Active Substance: DACARBAZINE
     Indication: METASTASES TO BONE
  15. LUTETIUM (LU 177)/SMT 487 [Suspect]
     Active Substance: EDOTREOTIDE\LUTETIUM LU-177
     Indication: METASTASES TO LUNG
  16. PROCYTOX 2000MG/VIAL [Suspect]
     Active Substance: CYCLOPHOSPHAMIDE
     Indication: METASTASES TO LIVER
  17. PROCYTOX 2000MG/VIAL [Suspect]
     Active Substance: CYCLOPHOSPHAMIDE
     Indication: METASTASES TO BONE
  18. SUNITINIB [Suspect]
     Active Substance: SUNITINIB
     Indication: PARAGANGLION NEOPLASM
     Route: 065
  19. VINCRISTINE [Suspect]
     Active Substance: VINCRISTINE
     Indication: METASTASES TO LIVER
  20. VINCRISTINE [Suspect]
     Active Substance: VINCRISTINE
     Indication: METASTASES TO BONE

REACTIONS (2)
  - Malignant neoplasm progression [Unknown]
  - Toxicity to various agents [Unknown]
